FAERS Safety Report 4446064-0 (Version None)
Quarter: 2004Q3

REPORT INFORMATION
  Report Type: 
  Country: None (occurrence: None)
  Receive Date: 20040907
  Receipt Date: 20040825
  Transmission Date: 20050211
  Serious: Yes (Death)
  Sender: FDA-Public Use
  Company Number: 04H-163-0271619-00

PATIENT
  Sex: Male

DRUGS (1)
  1. VITAMIN K1 [Suspect]
     Indication: INTERNATIONAL NORMALISED RATIO INCREASED

REACTIONS (1)
  - MEDICATION ERROR [None]
